FAERS Safety Report 13005979 (Version 4)
Quarter: 2017Q2

REPORT INFORMATION
  Report Type: Spontaneous
  Country: US (occurrence: US)
  Receive Date: 20161207
  Receipt Date: 20170605
  Transmission Date: 20170830
  Serious: No
  Sender: FDA-Public Use
  Company Number: US-BRISTOL-MYERS SQUIBB COMPANY-BMS-2016-103520

PATIENT
  Age: 75 Year
  Sex: Female

DRUGS (4)
  1. WELLBUTRIN [Suspect]
     Active Substance: BUPROPION HYDROCHLORIDE
     Indication: PRODUCT USED FOR UNKNOWN INDICATION
     Dosage: 300 MG, QD
     Route: 048
     Dates: start: 20160707
  2. ABILIFY [Suspect]
     Active Substance: ARIPIPRAZOLE
     Indication: MAJOR DEPRESSION
     Dosage: 15 MG, QD
     Route: 048
     Dates: start: 20160823, end: 20160927
  3. CYMBALTA [Suspect]
     Active Substance: DULOXETINE HYDROCHLORIDE
     Indication: DEPRESSION
     Dosage: 60 MG, QD
     Route: 048
     Dates: start: 20160707
  4. ABILIFY [Suspect]
     Active Substance: ARIPIPRAZOLE
     Indication: PRODUCT USED FOR UNKNOWN INDICATION
     Dosage: 7.5 MG, QD
     Route: 065
     Dates: end: 20161207

REACTIONS (9)
  - Wrong technique in product usage process [Unknown]
  - Hallucination [Recovered/Resolved]
  - Nightmare [Recovered/Resolved]
  - Mastication disorder [Not Recovered/Not Resolved]
  - Overdose [Unknown]
  - Dyskinesia [Not Recovered/Not Resolved]
  - Fear [Not Recovered/Not Resolved]
  - Feeling abnormal [Recovered/Resolved]
  - Dizziness [Unknown]

NARRATIVE: CASE EVENT DATE: 201611
